FAERS Safety Report 5575493-7 (Version None)
Quarter: 2007Q4

REPORT INFORMATION
  Report Type: 
  Country: None (occurrence: None)
  Receive Date: 20071227
  Receipt Date: 20071217
  Transmission Date: 20080405
  Serious: Yes (Hospitalization, Other)
  Sender: FDA-Public Use
  Company Number: BR-ABBOTT-07P-020-0425117-00

PATIENT
  Sex: Female
  Weight: 61 kg

DRUGS (3)
  1. HUMIRA [Suspect]
     Indication: RHEUMATOID ARTHRITIS
     Route: 058
     Dates: start: 20070701, end: 20071001
  2. METHOTREXATE [Concomitant]
     Indication: RHEUMATOID ARTHRITIS
     Dates: end: 20071001
  3. CORTICOSTEROIDS [Concomitant]
     Indication: RHEUMATOID ARTHRITIS
     Dates: end: 20071001

REACTIONS (3)
  - CALCULUS URETHRAL [None]
  - DRUG INEFFECTIVE [None]
  - PAIN [None]
